FAERS Safety Report 6821549-8 (Version None)
Quarter: 2010Q3

REPORT INFORMATION
  Report Type: 
  Country: None (occurrence: None)
  Receive Date: 20100707
  Receipt Date: 20090813
  Transmission Date: 20110219
  Serious: No
  Sender: FDA-Public Use
  Company Number: US-PFIZER INC-2009189190

PATIENT
  Sex: Female

DRUGS (3)
  1. SERTRALINE HCL [Suspect]
     Indication: DEPRESSION
     Dosage: 100 MG, UNK
     Dates: start: 20080324, end: 20090209
  2. SYNTHROID [Concomitant]
     Dosage: 112 UG / DAY
  3. ALENDRONATE SODIUM [Concomitant]
     Dosage: 70 MG, WEEKLY

REACTIONS (3)
  - CIRCUMSTANCE OR INFORMATION CAPABLE OF LEADING TO MEDICATION ERROR [None]
  - THROAT IRRITATION [None]
  - VOCAL CORD INFLAMMATION [None]
